FAERS Safety Report 9197997 (Version 1)
Quarter: 2013Q1

REPORT INFORMATION
  Report Type: Spontaneous
  Country: FR (occurrence: FR)
  Receive Date: 20130328
  Receipt Date: 20130328
  Transmission Date: 20140127
  Serious: Yes (Hospitalization)
  Sender: FDA-Public Use
  Company Number: FR-B.I. PHARMACEUTICALS,INC./RIDGEFIELD-2013-FF-00798FF

PATIENT
  Age: 66 Year
  Sex: Male
  Weight: 84 kg

DRUGS (8)
  1. PRADAXA [Suspect]
     Dosage: 300 MG
     Route: 048
     Dates: start: 20121125, end: 20121213
  2. ODRIK [Suspect]
     Dosage: 0.5 MG
     Route: 048
     Dates: start: 20121102, end: 20121213
  3. ZYLORIC [Suspect]
     Dosage: 100 MG
     Route: 048
     Dates: start: 20121102, end: 20121213
  4. KARDEGIC [Concomitant]
     Dosage: 75 MG
     Route: 048
     Dates: start: 201201
  5. LASILIX [Concomitant]
     Dosage: 40 MG
     Dates: start: 201201
  6. CARDENSIEL [Concomitant]
     Dosage: 10 MG
     Dates: start: 201203
  7. DIGOXINE [Concomitant]
     Dosage: 0.25 MG
     Dates: start: 20121102
  8. COCHICINE [Concomitant]
     Dosage: 1 MG
     Dates: start: 20121102

REACTIONS (2)
  - Renal failure acute [Recovered/Resolved]
  - Overdose [Recovered/Resolved]
